FAERS Safety Report 9556328 (Version 3)
Quarter: 2014Q1

REPORT INFORMATION
  Report Type: Spontaneous
  Country: US (occurrence: None)
  Receive Date: 20130726
  Receipt Date: 20140123
  Transmission Date: 20141002
  Serious: Yes (Hospitalization)
  Sender: FDA-Public Use
  Company Number: UTC-032667

PATIENT
  Age: 59 Year
  Sex: Female

DRUGS (4)
  1. REMODULIN [Suspect]
     Indication: PULMONARY ARTERIAL HYPERTENSION
     Dosage: 49.608 UG/KG (0.03445 UG/KG, 1 IN 1 MIN)
     Route: 058
     Dates: end: 201305
  2. TRACLEER (BOSENTAN) (TABLET) (BOSENTAN) [Suspect]
     Indication: PULMONARY ARTERIAL HYPERTENSION
     Dosage: 250 MG (125 MG, 2 IN 1 D), ORAL
     Route: 048
     Dates: start: 201205
  3. TRACLEER (BOSENTAN) (TABLET) (BOSENTAN) [Suspect]
     Indication: SCLERODERMA
     Dosage: 250 MG (125 MG, 2 IN 1 D), ORAL
     Route: 048
     Dates: start: 201205
  4. SILDENAFIL (UNKNOWN) [Concomitant]

REACTIONS (3)
  - Infusion site irritation [None]
  - Infusion site pain [None]
  - Device issue [None]
